FAERS Safety Report 10173450 (Version 1)
Quarter: 2014Q2

REPORT INFORMATION
  Report Type: Spontaneous
  Country: US (occurrence: US)
  Receive Date: 20140515
  Receipt Date: 20140515
  Transmission Date: 20141212
  Serious: No
  Sender: FDA-Public Use
  Company Number: US-TEVA-481916USA

PATIENT
  Age: 22 Year
  Sex: Female
  Weight: 54.48 kg

DRUGS (2)
  1. PLAN B ONE-STEP [Suspect]
     Indication: POST COITAL CONTRACEPTION
     Dosage: 1.5 MILLIGRAM DAILY;
     Route: 048
     Dates: start: 201402, end: 201402
  2. BEYAZ [Concomitant]
     Indication: CONTRACEPTION

REACTIONS (2)
  - Abdominal distension [Recovered/Resolved]
  - Menorrhagia [Recovered/Resolved]
